FAERS Safety Report 19156369 (Version 1)
Quarter: 2021Q2

REPORT INFORMATION
  Report Type: Spontaneous
  Country: SE (occurrence: SE)
  Receive Date: 20210419
  Receipt Date: 20210419
  Transmission Date: 20210717
  Serious: Yes (Other)
  Sender: FDA-Public Use
  Company Number: SE-GILEAD-2021-0525869

PATIENT
  Age: 67 Year
  Sex: Male

DRUGS (8)
  1. VEKLURY [Suspect]
     Active Substance: REMDESIVIR
     Indication: COVID-19
     Route: 042
     Dates: start: 20210329, end: 20210331
  2. DEXAMETHASONE. [Concomitant]
     Active Substance: DEXAMETHASONE
     Dates: start: 20210330
  3. RINGER?ACETAT [Concomitant]
     Dates: start: 20210329, end: 20210330
  4. INNOHEP [Concomitant]
     Active Substance: TINZAPARIN SODIUM
     Dates: start: 20210330
  5. OMEPRAZOLE. [Concomitant]
     Active Substance: OMEPRAZOLE
     Dates: start: 20210330
  6. FELODIPINE. [Concomitant]
     Active Substance: FELODIPINE
     Dates: start: 20210329
  7. CEFOTAXIME [Concomitant]
     Active Substance: CEFOTAXIME SODIUM
     Dates: start: 20210328
  8. ALVEDON [Concomitant]
     Active Substance: ACETAMINOPHEN
     Dates: start: 20210328

REACTIONS (1)
  - Bradycardia [Not Recovered/Not Resolved]

NARRATIVE: CASE EVENT DATE: 20210331
